FAERS Safety Report 9099659 (Version 9)
Quarter: 2015Q2

REPORT INFORMATION
  Report Type: Report from Study
  Country: CA (occurrence: CA)
  Receive Date: 20130214
  Receipt Date: 20150424
  Transmission Date: 20150821
  Serious: Yes (Other)
  Sender: FDA-Public Use
  Company Number: CA-ROCHE-1131743

PATIENT
  Age: 69 Year
  Sex: Male
  Weight: 88.9 kg

DRUGS (25)
  1. ACTONEL [Concomitant]
     Active Substance: RISEDRONATE SODIUM
     Route: 065
  2. LANTUS [Concomitant]
     Active Substance: INSULIN GLARGINE
     Indication: DIABETES MELLITUS
  3. VITAMIN C [Concomitant]
     Active Substance: ASCORBIC ACID
  4. METHYLPREDNISOLONE. [Concomitant]
     Active Substance: METHYLPREDNISOLONE
     Indication: PREMEDICATION
     Route: 042
     Dates: start: 20120216, end: 20140514
  5. NORVASC [Concomitant]
     Active Substance: AMLODIPINE BESYLATE
  6. ELTROXIN [Concomitant]
     Active Substance: LEVOTHYROXINE
  7. ADVAIR HFA [Concomitant]
     Active Substance: FLUTICASONE PROPIONATE\SALMETEROL XINAFOATE
  8. ASA [Concomitant]
     Active Substance: ASPIRIN
     Route: 065
  9. METHOTREXATE [Concomitant]
     Active Substance: METHOTREXATE
     Route: 065
  10. SALMON OIL [Concomitant]
     Active Substance: FISH OIL
  11. MOBICOX [Concomitant]
     Active Substance: MELOXICAM
     Route: 065
  12. ECHINACEA [Concomitant]
     Active Substance: ECHINACEA, UNSPECIFIED
     Dosage: PRN
     Route: 065
  13. PREDNISONE. [Concomitant]
     Active Substance: PREDNISONE
     Route: 065
     Dates: start: 2002
  14. RITUXAN [Suspect]
     Active Substance: RITUXIMAB
     Indication: RHEUMATOID ARTHRITIS
     Dosage: PREVIOUS RITUXAN DOSE: 03/APR/2013, 24/MAR/2015
     Route: 042
     Dates: start: 20120216
  15. NOVORAPID [Concomitant]
     Active Substance: INSULIN ASPART
     Dosage: PRN AT MEALS
     Route: 065
  16. LIPITOR [Concomitant]
     Active Substance: ATORVASTATIN CALCIUM
  17. PREVACID [Concomitant]
     Active Substance: LANSOPRAZOLE
  18. SPIRIVA [Concomitant]
     Active Substance: TIOTROPIUM BROMIDE MONOHYDRATE
  19. VENTOLIN [Concomitant]
     Active Substance: ALBUTEROL SULFATE
  20. PLAQUENIL [Concomitant]
     Active Substance: HYDROXYCHLOROQUINE SULFATE
     Route: 065
  21. COVERSYL [Concomitant]
     Active Substance: PERINDOPRIL
  22. HYDROMORPHONE [Concomitant]
     Active Substance: HYDROMORPHONE
     Route: 048
  23. FOLIC ACID. [Concomitant]
     Active Substance: FOLIC ACID
  24. ACETAMINOPHEN. [Concomitant]
     Active Substance: ACETAMINOPHEN
     Indication: PREMEDICATION
     Route: 048
     Dates: start: 20120216
  25. DIPHENHYDRAMINE HCL [Concomitant]
     Active Substance: DIPHENHYDRAMINE HYDROCHLORIDE
     Indication: PREMEDICATION
     Route: 048
     Dates: start: 20120216

REACTIONS (8)
  - Blood pressure decreased [Not Recovered/Not Resolved]
  - Prostatomegaly [Unknown]
  - Squamous cell carcinoma [Unknown]
  - Pain [Not Recovered/Not Resolved]
  - Vascular occlusion [Unknown]
  - Rheumatoid arthritis [Not Recovered/Not Resolved]
  - Tinea pedis [Unknown]
  - Musculoskeletal stiffness [Not Recovered/Not Resolved]

NARRATIVE: CASE EVENT DATE: 20120912
